FAERS Safety Report 21680066 (Version 1)
Quarter: 2022Q4

REPORT INFORMATION
  Report Type: Spontaneous
  Country: US (occurrence: US)
  Receive Date: 20221205
  Receipt Date: 20221205
  Transmission Date: 20230112
  Serious: No
  Sender: FDA-Public Use
  Company Number: US-GE HEALTHCARE-2022CSU007348

PATIENT
  Age: 36 Year
  Sex: Female
  Weight: 73.016 kg

DRUGS (2)
  1. OMNIPAQUE [Suspect]
     Active Substance: IOHEXOL
     Indication: Computerised tomogram neck
     Dosage: 100 ML, (1.4 ML/SEC), SINGLE
     Route: 042
     Dates: start: 20221011, end: 20221011
  2. OMNIPAQUE [Suspect]
     Active Substance: IOHEXOL
     Indication: Dysphagia

REACTIONS (1)
  - Hypersensitivity [Recovered/Resolved]

NARRATIVE: CASE EVENT DATE: 20221011
